FAERS Safety Report 23888946 (Version 1)
Quarter: 2024Q2

REPORT INFORMATION
  Report Type: Report from Study
  Country: US (occurrence: US)
  Receive Date: 20240523
  Receipt Date: 20240523
  Transmission Date: 20240716
  Serious: Yes (Hospitalization)
  Sender: FDA-Public Use
  Company Number: US-JNJFOC-20240541563

PATIENT
  Sex: Male

DRUGS (6)
  1. SPRAVATO [Suspect]
     Active Substance: ESKETAMINE
     Indication: Depression
     Dosage: ^56 MG, 30 TOTAL DOSES^
     Dates: start: 20190827, end: 20210614
  2. SPRAVATO [Suspect]
     Active Substance: ESKETAMINE
     Dosage: ^84 MG, 20 TOTAL DOSES^
     Dates: start: 20210621, end: 20210902
  3. SPRAVATO [Suspect]
     Active Substance: ESKETAMINE
     Dosage: DOSE, UNSPECIFIED
     Dates: start: 20210907, end: 20210907
  4. SPRAVATO [Suspect]
     Active Substance: ESKETAMINE
     Dosage: ^84 MG, 35 TOTAL DOSES^
     Dates: start: 20210909, end: 20220324
  5. SPRAVATO [Suspect]
     Active Substance: ESKETAMINE
     Dosage: DOSE, UNSPECIFIED
     Dates: start: 20220829, end: 20220829
  6. SPRAVATO [Suspect]
     Active Substance: ESKETAMINE
     Dosage: ^84 MG, 140 TOTAL DOSES^
     Dates: start: 20220906, end: 20240513

REACTIONS (2)
  - Cerebrovascular accident [Recovering/Resolving]
  - Bacterial infection [Recovering/Resolving]
